FAERS Safety Report 10227975 (Version 3)
Quarter: 2014Q4

REPORT INFORMATION
  Report Type: Spontaneous
  Country: CN (occurrence: CN)
  Receive Date: 20140610
  Receipt Date: 20141022
  Transmission Date: 20150528
  Serious: Yes (Hospitalization, Other)
  Sender: FDA-Public Use
  Company Number: PHHY2014CN066456

PATIENT
  Age: 61 Year
  Sex: Male

DRUGS (1)
  1. SEBIVO [Suspect]
     Active Substance: TELBIVUDINE
     Indication: HEPATITIS B
     Dosage: 600 MG, PER DAY
     Route: 048
     Dates: start: 20130601, end: 20140613

REACTIONS (5)
  - Fall [Recovering/Resolving]
  - Diabetic neuropathy [Recovering/Resolving]
  - Diabetic complication [Recovering/Resolving]
  - Dysaesthesia [Recovering/Resolving]
  - Hypoaesthesia [Recovering/Resolving]

NARRATIVE: CASE EVENT DATE: 20140613
